FAERS Safety Report 19327645 (Version 1)
Quarter: 2021Q2

REPORT INFORMATION
  Report Type: Spontaneous
  Country: US (occurrence: US)
  Receive Date: 20210528
  Receipt Date: 20210528
  Transmission Date: 20210717
  Serious: Yes (Other)
  Sender: FDA-Public Use
  Company Number: US-SA-2017SA268278

PATIENT
  Age: 40 Year
  Sex: Female
  Weight: 114.7 kg

DRUGS (5)
  1. ARANESP [Concomitant]
     Active Substance: DARBEPOETIN ALFA
  2. TAXOTERE [Suspect]
     Active Substance: DOCETAXEL
     Indication: NEOPLASM MALIGNANT
     Dosage: 150 MG,Q3W
     Route: 042
     Dates: start: 20071107, end: 20071107
  3. NEOSAR [Concomitant]
     Active Substance: CYCLOPHOSPHAMIDE
     Dosage: 1220 MG,QCY
     Route: 042
  4. TAXOTERE [Suspect]
     Active Substance: DOCETAXEL
     Dosage: 150 MG,Q3W
     Route: 042
     Dates: start: 20080212, end: 20080212
  5. ALOXI [Concomitant]
     Active Substance: PALONOSETRON HYDROCHLORIDE

REACTIONS (2)
  - Psychological trauma [Unknown]
  - Alopecia [Recovering/Resolving]

NARRATIVE: CASE EVENT DATE: 20071217
